FAERS Safety Report 6488774-X (Version None)
Quarter: 2009Q4

REPORT INFORMATION
  Report Type: 
  Country: None (occurrence: None)
  Receive Date: 20091207
  Receipt Date: 20091120
  Transmission Date: 20100525
  Serious: Yes (Other)
  Sender: FDA-Public Use
  Company Number: AUR-APL-2009-01349

PATIENT
  Age: 82 Year
  Sex: Female

DRUGS (1)
  1. ALENDRONATE SODIUM [Suspect]
     Indication: SPINAL FRACTURE
     Dosage: 70MG -ONCE A WEEK- UNK

REACTIONS (3)
  - FEMUR FRACTURE [None]
  - FIBULA FRACTURE [None]
  - PATHOLOGICAL FRACTURE [None]
